FAERS Safety Report 8463658-6 (Version None)
Quarter: 2012Q2

REPORT INFORMATION
  Report Type: 
  Country: None (occurrence: None)
  Receive Date: 20120625
  Receipt Date: 20120619
  Transmission Date: 20120825
  Serious: Yes (Hospitalization, Other)
  Sender: FDA-Public Use
  Company Number: BR-ROCHE-1039458

PATIENT
  Sex: Female
  Weight: 80 kg

DRUGS (10)
  1. MABTHERA [Suspect]
     Indication: RHEUMATOID ARTHRITIS
     Route: 042
     Dates: start: 20110919, end: 20111004
  2. FOLIC ACID [Concomitant]
  3. METHOTREXATE [Concomitant]
  4. DEPURAN [Concomitant]
  5. CLONAZEPAM [Concomitant]
  6. CORTICORTEN [Concomitant]
  7. IBUPROFEN [Concomitant]
  8. MABTHERA [Suspect]
     Route: 042
     Dates: start: 20120330, end: 20120413
  9. ALENDRONATE SODIUM [Concomitant]
  10. PREDNISONE TAB [Concomitant]

REACTIONS (4)
  - LIGAMENT RUPTURE [None]
  - FALL [None]
  - WEIGHT INCREASED [None]
  - MOBILITY DECREASED [None]
